FAERS Safety Report 12117390 (Version 2)
Quarter: 2025Q4

REPORT INFORMATION
  Report Type: Spontaneous
  Country: CA (occurrence: CA)
  Receive Date: 20160225
  Receipt Date: 20251214
  Transmission Date: 20260117
  Serious: Yes (Other)
  Sender: BIOMARIN
  Company Number: CA-BIOMARINAP-CA-2014-109028

PATIENT
  Age: 21 Year
  Sex: Male
  Weight: 71.3 kg

DRUGS (2)
  1. KUVAN [Suspect]
     Active Substance: SAPROPTERIN DIHYDROCHLORIDE
     Indication: Phenylketonuria
     Dosage: 2000 MILLIGRAM, QD
     Dates: start: 20130125
  2. KUVAN [Suspect]
     Active Substance: SAPROPTERIN DIHYDROCHLORIDE
     Dosage: 1400 MG, QD
     Dates: start: 20130125

REACTIONS (4)
  - Depression [Unknown]
  - Anxiety [Unknown]
  - Weight increased [Unknown]
  - Mental disorder [Unknown]

NARRATIVE: CASE EVENT DATE: 20240101
